FAERS Safety Report 4808093-4 (Version None)
Quarter: 2005Q4

REPORT INFORMATION
  Report Type: 
  Country: None (occurrence: None)
  Receive Date: 20051024
  Receipt Date: 20051012
  Transmission Date: 20060501
  Serious: Yes (Hospitalization)
  Sender: FDA-Public Use
  Company Number: FR-MERCK-0510FRA00051

PATIENT
  Age: 34 Year
  Sex: Male

DRUGS (8)
  1. CANCIDAS [Suspect]
     Indication: OESOPHAGEAL CANDIDIASIS
     Route: 051
  2. CANCIDAS [Suspect]
     Route: 051
  3. AMPHOTERICIN B [Concomitant]
     Indication: OESOPHAGEAL CANDIDIASIS
     Route: 051
  4. ANTIVIRAL (UNSPECIFIED) [Concomitant]
     Indication: ACQUIRED IMMUNODEFICIENCY SYNDROME
     Route: 048
  5. VORICONAZOLE [Concomitant]
     Indication: OESOPHAGEAL CANDIDIASIS
     Route: 065
  6. VORICONAZOLE [Concomitant]
     Route: 048
  7. VORICONAZOLE [Concomitant]
     Route: 048
  8. [THERAPY UNSPECIFIED] [Concomitant]
     Indication: MYCOBACTERIUM AVIUM COMPLEX INFECTION
     Route: 065

REACTIONS (1)
  - DRUG RESISTANCE [None]
